FAERS Safety Report 10867046 (Version 2)
Quarter: 2015Q1

REPORT INFORMATION
  Report Type: Spontaneous
  Country: AU (occurrence: AU)
  Receive Date: 20150225
  Receipt Date: 20150226
  Transmission Date: 20150721
  Serious: Yes (Other)
  Sender: FDA-Public Use
  Company Number: AU-ROCHE-1542667

PATIENT
  Age: 46 Year
  Sex: Male

DRUGS (5)
  1. OXALIPLATIN. [Concomitant]
     Active Substance: OXALIPLATIN
  2. 5-FLUOROURACIL [Concomitant]
     Active Substance: FLUOROURACIL
  3. AVASTIN [Suspect]
     Active Substance: BEVACIZUMAB
     Indication: ADENOCARCINOMA
     Route: 065
  4. PACLITAXEL. [Suspect]
     Active Substance: PACLITAXEL
     Indication: ADENOCARCINOMA
     Dosage: D1,8
     Route: 065
  5. LEUCOVORIN [Concomitant]
     Active Substance: LEUCOVORIN

REACTIONS (12)
  - Neuropathy peripheral [Unknown]
  - Neuropathy peripheral [Unknown]
  - Gastric ulcer [Unknown]
  - Fatigue [Unknown]
  - Ulcer haemorrhage [Unknown]
  - Peroneal nerve palsy [Unknown]
  - Sepsis [Unknown]
  - Arthritis [Unknown]
  - Thrombocytopenia [Unknown]
  - Haematemesis [Unknown]
  - Abdominal pain upper [Unknown]
  - Portal vein thrombosis [Unknown]

NARRATIVE: CASE EVENT DATE: 201403
